FAERS Safety Report 11481099 (Version 1)
Quarter: 2015Q3

REPORT INFORMATION
  Report Type: Spontaneous
  Country: US (occurrence: US)
  Receive Date: 20150909
  Receipt Date: 20150909
  Transmission Date: 20151125
  Serious: No
  Sender: FDA-Public Use
  Company Number: US-GLAXOSMITHKLINE-US2015GSK128631

PATIENT
  Sex: Female

DRUGS (1)
  1. HYCAMTIN [Suspect]
     Active Substance: TOPOTECAN HYDROCHLORIDE
     Indication: COLON CANCER
     Dosage: 2.75 MG, QD FOR 5 DAYS Q 21 DAYS
     Dates: start: 20150812

REACTIONS (3)
  - Pain [Unknown]
  - Aphonia [Unknown]
  - Alopecia [Unknown]
